FAERS Safety Report 22901015 (Version 3)
Quarter: 2024Q3

REPORT INFORMATION
  Report Type: Spontaneous
  Country: CA (occurrence: CA)
  Receive Date: 20230904
  Receipt Date: 20240822
  Transmission Date: 20241017
  Serious: Yes (Death, Other)
  Sender: SANDOZ
  Company Number: CA-002147023-NVSC2022CA199830

PATIENT
  Sex: Female

DRUGS (3)
  1. FULVESTRANT [Suspect]
     Active Substance: FULVESTRANT
     Indication: Breast cancer metastatic
     Dosage: UNK
     Route: 065
     Dates: start: 20220929
  2. KISQALI [Suspect]
     Active Substance: RIBOCICLIB
     Indication: Breast cancer metastatic
     Dosage: 600 MG, OTHER (ONCE DAILY FOR DAYS 1-21 OF 28-DAY CYCLE, THEN 7DAYS OFF TREATMENT)
     Route: 048
     Dates: start: 20220927
  3. LETROZOLE [Suspect]
     Active Substance: LETROZOLE
     Indication: Breast cancer metastatic
     Dosage: 2.5 MG
     Route: 065
     Dates: start: 202201, end: 202208

REACTIONS (5)
  - Death [Fatal]
  - Breast cancer metastatic [Unknown]
  - Malignant neoplasm progression [Unknown]
  - Abdominal pain upper [Unknown]
  - Dizziness [Unknown]

NARRATIVE: CASE EVENT DATE: 20220101
